FAERS Safety Report 7114765-1 (Version None)
Quarter: 2010Q4

REPORT INFORMATION
  Report Type: 
  Country: None (occurrence: None)
  Receive Date: 20101122
  Receipt Date: 20101110
  Transmission Date: 20110411
  Serious: No
  Sender: FDA-Public Use
  Company Number: US-BIOGENIDEC-2010BI035469

PATIENT
  Sex: Female

DRUGS (9)
  1. TYSABRI [Suspect]
     Indication: MULTIPLE SCLEROSIS
     Route: 042
     Dates: end: 20100401
  2. TYSABRI [Suspect]
     Route: 042
     Dates: start: 20101001
  3. AVONEX [Concomitant]
     Indication: MULTIPLE SCLEROSIS
     Route: 030
  4. NOVANTRONE [Concomitant]
     Indication: MULTIPLE SCLEROSIS
  5. REBIF [Concomitant]
     Indication: MULTIPLE SCLEROSIS
  6. NUVIGIL [Concomitant]
     Indication: FATIGUE
  7. CELEXA [Concomitant]
     Indication: DEPRESSION
  8. BIRTH CONTROL PILLS [Concomitant]
  9. ACYCLOVIR [Concomitant]
     Indication: GENITAL HERPES

REACTIONS (2)
  - DERMATITIS ACNEIFORM [None]
  - MOOD ALTERED [None]
